FAERS Safety Report 8884151 (Version 1)
Quarter: 2012Q4

REPORT INFORMATION
  Report Type: 
  Country: US (occurrence: US)
  Receive Date: 20121102
  Receipt Date: 20121102
  Transmission Date: 20130627
  Serious: No
  Sender: FDA-Public Use
  Company Number: US-ASTRAZENECA-2012SE14439

PATIENT
  Sex: Female
  Weight: 68.5 kg

DRUGS (6)
  1. CRESTOR [Suspect]
     Indication: DYSLIPIDAEMIA
     Route: 048
  2. CRESTOR [Suspect]
     Indication: DYSLIPIDAEMIA
     Route: 048
     Dates: start: 20120216
  3. SYNTHROID [Concomitant]
  4. ZOLOFT [Concomitant]
  5. CYTOMEL [Concomitant]
  6. KLONOPIN [Concomitant]

REACTIONS (1)
  - Feeling abnormal [Unknown]
